FAERS Safety Report 22352600 (Version 1)
Quarter: 2023Q2

REPORT INFORMATION
  Report Type: Spontaneous
  Country: US (occurrence: US)
  Receive Date: 20230523
  Receipt Date: 20230523
  Transmission Date: 20230721
  Serious: Yes (Hospitalization)
  Sender: FDA-Public Use
  Company Number: US-002147023-NVSC2023US114674

PATIENT
  Sex: Male

DRUGS (1)
  1. HYDROXYCHLOROQUINE [Suspect]
     Active Substance: HYDROXYCHLOROQUINE
     Indication: COVID-19
     Dosage: 5 G
     Route: 065

REACTIONS (5)
  - Lethargy [Unknown]
  - Hypotension [Unknown]
  - Electrocardiogram QRS complex prolonged [Recovered/Resolved]
  - Accidental overdose [Unknown]
  - Product use in unapproved indication [Unknown]
